FAERS Safety Report 24233645 (Version 1)
Quarter: 2024Q3

REPORT INFORMATION
  Report Type: Spontaneous
  Country: US (occurrence: US)
  Receive Date: 20240821
  Receipt Date: 20240821
  Transmission Date: 20241017
  Serious: No
  Sender: PERRIGO
  Company Number: US-PERRIGO-24US001193

PATIENT
  Age: 70 Year
  Sex: Female
  Weight: 102.04 kg

DRUGS (5)
  1. MINOXIDIL [Suspect]
     Active Substance: MINOXIDIL
     Indication: Alopecia
     Dosage: A DROP, BID
     Route: 061
     Dates: start: 202311, end: 202401
  2. VITAMIN D NOS [Suspect]
     Active Substance: CHOLECALCIFEROL\ERGOCALCIFEROL
     Indication: Arthropathy
     Dosage: UNKNOWN, OFF AND ON AS NEEDED
     Route: 048
     Dates: start: 2021, end: 202401
  3. VITAMIN D NOS [Suspect]
     Active Substance: CHOLECALCIFEROL\ERGOCALCIFEROL
     Indication: Supplementation therapy
     Dosage: UNKNOWN, OFF AND ON
     Route: 048
     Dates: start: 20240201, end: 20240224
  4. ASCORBIC ACID [Suspect]
     Active Substance: ASCORBIC ACID
     Indication: Arthropathy
     Dosage: UNKNOWN, OFF AND ON
     Route: 048
     Dates: start: 2021, end: 202401
  5. ASCORBIC ACID [Suspect]
     Active Substance: ASCORBIC ACID
     Indication: Supplementation therapy
     Dosage: UNKNOWN, UNKNOWN
     Route: 065
     Dates: start: 20240202

REACTIONS (10)
  - Nasal congestion [Recovered/Resolved]
  - Nasal inflammation [Recovered/Resolved]
  - Back pain [Recovered/Resolved]
  - Trigger points [Recovering/Resolving]
  - Contusion [Recovering/Resolving]
  - Hypertension [Recovered/Resolved]
  - Onycholysis [Not Recovered/Not Resolved]
  - Neuralgia [Recovered/Resolved]
  - Constipation [Recovered/Resolved]
  - Underdose [Unknown]

NARRATIVE: CASE EVENT DATE: 20231101
